FAERS Safety Report 6184304-0 (Version None)
Quarter: 2009Q2

REPORT INFORMATION
  Report Type: 
  Country: None (occurrence: None)
  Receive Date: 20090508
  Receipt Date: 20090501
  Transmission Date: 20091009
  Serious: Yes (Other)
  Sender: FDA-Public Use
  Company Number: US-AVENTIS-200913807US

PATIENT
  Age: 45 Year
  Sex: Female

DRUGS (3)
  1. LANTUS [Suspect]
     Route: 058
     Dates: start: 20020101
  2. HUMALOG [Concomitant]
     Dosage: DOSE: UNK
  3. METFORMIN HCL [Concomitant]
     Dosage: DOSE: UNK

REACTIONS (3)
  - CATARACT [None]
  - GLAUCOMA [None]
  - THROMBOSIS [None]
